FAERS Safety Report 12214987 (Version 1)
Quarter: 2016Q1

REPORT INFORMATION
  Report Type: Spontaneous
  Country: US (occurrence: US)
  Receive Date: 20160328
  Receipt Date: 20160328
  Transmission Date: 20160526
  Serious: No
  Sender: FDA-Public Use
  Company Number: US-JAZZ-2015-US-018085

PATIENT
  Sex: Male

DRUGS (1)
  1. CLOZAPINE USP, ODT [Suspect]
     Active Substance: CLOZAPINE
     Dosage: UNK MG, QD
     Route: 048

REACTIONS (1)
  - Lower limb fracture [Unknown]

NARRATIVE: CASE EVENT DATE: 2014
